FAERS Safety Report 4817672-X (Version None)
Quarter: 2005Q4

REPORT INFORMATION
  Report Type: 
  Country: None (occurrence: None)
  Receive Date: 20051101
  Receipt Date: 20051101
  Transmission Date: 20060501
  Serious: Yes (Hospitalization)
  Sender: FDA-Public Use
  Company Number: None

PATIENT
  Age: 64 Year
  Sex: Male
  Weight: 53.978 kg

DRUGS (1)
  1. AMITRIPTYLINE HCL [Suspect]
     Indication: NEUROPATHY PERIPHERAL
     Dosage: 25MG  QHS PO
     Route: 048
     Dates: start: 20050101, end: 20050307

REACTIONS (3)
  - ALCOHOLISM [None]
  - DRUG TOXICITY [None]
  - INAPPROPRIATE ANTIDIURETIC HORMONE SECRETION [None]
